FAERS Safety Report 10403066 (Version 2)
Quarter: 2014Q4

REPORT INFORMATION
  Report Type: Spontaneous
  Country: JP (occurrence: JP)
  Receive Date: 20140822
  Receipt Date: 20141121
  Transmission Date: 20150528
  Serious: Yes (Hospitalization)
  Sender: FDA-Public Use
  Company Number: JP-ASTELLAS-2014JP018209AA

PATIENT
  Age: 81 Year
  Sex: Male

DRUGS (1)
  1. XTANDI [Suspect]
     Active Substance: ENZALUTAMIDE
     Indication: HORMONE-REFRACTORY PROSTATE CANCER
     Route: 048
     Dates: start: 20140807, end: 20140811

REACTIONS (1)
  - Tongue abscess [Recovered/Resolved]

NARRATIVE: CASE EVENT DATE: 20140811
